FAERS Safety Report 9190352 (Version 1)
Quarter: 2013Q1

REPORT INFORMATION
  Report Type: Spontaneous
  Country: TR (occurrence: None)
  Receive Date: 20130322
  Receipt Date: 20130322
  Transmission Date: 20140127
  Serious: Yes (Hospitalization)
  Sender: FDA-Public Use
  Company Number: PIR#CC400173736

PATIENT
  Age: 42 Year
  Sex: Female

DRUGS (2)
  1. CEFUROXIME AXETIL [Suspect]
     Indication: PROPHYLAXIS
  2. NAPROXEN SODIUM [Concomitant]

REACTIONS (10)
  - Haematuria [None]
  - Headache [None]
  - Nausea [None]
  - Pallor [None]
  - Petechiae [None]
  - Ecchymosis [None]
  - Anaemia [None]
  - Thrombocytopenia [None]
  - Epilepsy [None]
  - Haemolysis [None]
